FAERS Safety Report 6215839-X (Version None)
Quarter: 2009Q2

REPORT INFORMATION
  Report Type: 
  Country: None (occurrence: None)
  Receive Date: 20090605
  Receipt Date: 20090601
  Transmission Date: 20091009
  Serious: No
  Sender: FDA-Public Use
  Company Number: US-JNJFOC-20090600952

PATIENT
  Sex: Male
  Weight: 102.06 kg

DRUGS (6)
  1. FENTANYL TRANSDERMAL SYSTEM [Suspect]
     Route: 062
  2. FENTANYL TRANSDERMAL SYSTEM [Suspect]
     Route: 062
  3. FENTANYL TRANSDERMAL SYSTEM [Suspect]
     Route: 062
  4. FENTANYL TRANSDERMAL SYSTEM [Suspect]
     Indication: PAIN IN EXTREMITY
     Route: 062
  5. OXYCODONE [Concomitant]
     Indication: BREAKTHROUGH PAIN
     Dosage: 7.5MG / 325MG AS NEEDED
     Route: 048
  6. LYRICA [Concomitant]
     Indication: NERVE INJURY
     Route: 048

REACTIONS (8)
  - CHILLS [None]
  - DEVICE LEAKAGE [None]
  - DIZZINESS [None]
  - FATIGUE [None]
  - FEELING HOT [None]
  - INAPPROPRIATE SCHEDULE OF DRUG ADMINISTRATION [None]
  - PALPITATIONS [None]
  - PRODUCT QUALITY ISSUE [None]
